FAERS Safety Report 21012100 (Version 2)
Quarter: 2022Q3

REPORT INFORMATION
  Report Type: Report from Study
  Country: BR (occurrence: BR)
  Receive Date: 20220627
  Receipt Date: 20220629
  Transmission Date: 20221026
  Serious: Yes (Other)
  Sender: FDA-Public Use
  Company Number: BR-NOVARTISPH-NVSC2022BR063373

PATIENT
  Sex: Female
  Weight: 80 kg

DRUGS (6)
  1. TAFINLAR [Suspect]
     Active Substance: DABRAFENIB MESYLATE
     Indication: Melanoma recurrent
     Dosage: UNK, (1 MONTH AGO)
     Route: 065
  2. TAFINLAR [Suspect]
     Active Substance: DABRAFENIB MESYLATE
     Dosage: UNK (4 TABLETS PER DAY)
     Route: 048
     Dates: end: 202102
  3. MEKINIST [Suspect]
     Active Substance: TRAMETINIB DIMETHYL SULFOXIDE
     Indication: Melanoma recurrent
     Dosage: UNK, (1 MONTH AGO)
     Route: 065
  4. MEKINIST [Suspect]
     Active Substance: TRAMETINIB DIMETHYL SULFOXIDE
     Dosage: UNK (1 TABLET), QD
     Route: 048
     Dates: end: 202102
  5. ROSUVASTATIN CALCIUM [Suspect]
     Active Substance: ROSUVASTATIN CALCIUM
     Indication: Product used for unknown indication
     Dosage: UNK, EVERY OTHER DAY (MANY YEARS AGO)
     Route: 048
  6. VENLAFAXINE HYDROCHLORIDE [Concomitant]
     Active Substance: VENLAFAXINE HYDROCHLORIDE
     Indication: Product used for unknown indication
     Dosage: UNK, 91 PER DAY (MANY YEARS AGO)
     Route: 048

REACTIONS (3)
  - Asthenia [Unknown]
  - Eye inflammation [Unknown]
  - Visual impairment [Recovered/Resolved]
